FAERS Safety Report 12230144 (Version 1)
Quarter: 2016Q1

REPORT INFORMATION
  Report Type: Spontaneous
  Country: US (occurrence: None)
  Receive Date: 20160331
  Receipt Date: 20160331
  Transmission Date: 20160526
  Serious: No
  Sender: FDA-Public Use
  Company Number: None

PATIENT
  Age: 65 Year
  Sex: Female

DRUGS (14)
  1. ILEVRO [Concomitant]
     Active Substance: NEPAFENAC
  2. AMOX/K CLAV [Concomitant]
     Active Substance: AMOXICILLIN\CLAVULANATE POTASSIUM
  3. HYDROXYCHLOR [Concomitant]
     Active Substance: HYDROXYCHLOROQUINE
  4. METFORMIN [Concomitant]
     Active Substance: METFORMIN HYDROCHLORIDE
  5. VIGAMOX [Concomitant]
     Active Substance: MOXIFLOXACIN HYDROCHLORIDE
  6. AZITHROMYCIN ANHYDROUS. [Concomitant]
     Active Substance: AZITHROMYCIN ANHYDROUS
  7. FLUTICASONE [Concomitant]
     Active Substance: FLUTICASONE\FLUTICASONE PROPIONATE
  8. MELOXICAM. [Concomitant]
     Active Substance: MELOXICAM
  9. PREDNISOLONE. [Concomitant]
     Active Substance: PREDNISOLONE
  10. SIMPONI [Suspect]
     Active Substance: GOLIMUMAB
     Indication: RHEUMATOID ARTHRITIS
     Route: 058
     Dates: start: 20151128
  11. AZATHIOPRINE. [Concomitant]
     Active Substance: AZATHIOPRINE
  12. MONTELUKAST [Concomitant]
     Active Substance: MONTELUKAST SODIUM
  13. CANDESARTAN [Concomitant]
     Active Substance: CANDESARTAN
  14. GLIMEPIRIDE. [Concomitant]
     Active Substance: GLIMEPIRIDE

REACTIONS (2)
  - Cataract operation [None]
  - Intracranial mass [None]

NARRATIVE: CASE EVENT DATE: 20160120
